FAERS Safety Report 20774946 (Version 1)
Quarter: 2022Q2

REPORT INFORMATION
  Report Type: Spontaneous
  Country: US (occurrence: US)
  Receive Date: 20220502
  Receipt Date: 20220502
  Transmission Date: 20220721
  Serious: No
  Sender: FDA-Public Use
  Company Number: US-BIOVITRUM-2022US05686

PATIENT
  Age: 0 Year
  Sex: Female

DRUGS (1)
  1. SYNAGIS [Suspect]
     Active Substance: PALIVIZUMAB
     Indication: Premature baby
     Dosage: DOSAGE FORM: 82.63 UNIT NOT REPORTED
     Route: 030
     Dates: start: 20211110

REACTIONS (2)
  - COVID-19 [Unknown]
  - Pyrexia [Unknown]

NARRATIVE: CASE EVENT DATE: 20220416
